FAERS Safety Report 23577865 (Version 1)
Quarter: 2024Q1

REPORT INFORMATION
  Report Type: Spontaneous
  Country: DE (occurrence: DE)
  Receive Date: 20240228
  Receipt Date: 20240228
  Transmission Date: 20240409
  Serious: Yes (Other)
  Sender: FDA-Public Use
  Company Number: DE-SUN PHARMACEUTICAL INDUSTRIES LTD-2023RR-422970

PATIENT
  Age: 82 Year
  Sex: Male

DRUGS (12)
  1. FLUCONAZOLE [Suspect]
     Active Substance: FLUCONAZOLE
     Indication: Body tinea
     Dosage: 200 MILLIGRAM, 1/WEEK
     Route: 065
     Dates: start: 201504, end: 201611
  2. FLUCONAZOLE [Suspect]
     Active Substance: FLUCONAZOLE
     Dosage: 50 MILLIGRAM, DAILY
     Route: 065
     Dates: start: 201306, end: 201504
  3. ITRACONAZOLE [Suspect]
     Active Substance: ITRACONAZOLE
     Indication: Body tinea
     Dosage: 50 MILLIGRAM, QD
     Route: 065
     Dates: start: 201611, end: 201703
  4. TERBINAFINE [Suspect]
     Active Substance: TERBINAFINE
     Dosage: 250 MILLIGRAM, DAILY
     Route: 065
     Dates: start: 201704, end: 201705
  5. TERBINAFINE [Suspect]
     Active Substance: TERBINAFINE
     Dosage: 250 MILLIGRAM
     Route: 065
     Dates: start: 20180401, end: 20200611
  6. TERBINAFINE [Suspect]
     Active Substance: TERBINAFINE
     Indication: Body tinea
     Dosage: 250 MILLIGRAM, 1/WEEK
     Route: 065
     Dates: start: 201504, end: 201611
  7. TERBINAFINE [Suspect]
     Active Substance: TERBINAFINE
     Dosage: 250 MILLIGRAM, 1/WEEK
     Route: 065
     Dates: start: 20180401, end: 20200611
  8. TERBINAFINE [Suspect]
     Active Substance: TERBINAFINE
     Dosage: 250 MILLIGRAM, EVERY 3 DAYS
     Route: 065
     Dates: start: 20210207
  9. TERBINAFINE [Suspect]
     Active Substance: TERBINAFINE
     Dosage: 250 MILLIGRAM, 2/WEEK
     Route: 061
  10. TERBINAFINE [Suspect]
     Active Substance: TERBINAFINE
     Dosage: OCASIONALLY
     Route: 061
  11. VORICONAZOLE [Suspect]
     Active Substance: VORICONAZOLE
     Indication: Body tinea
     Dosage: 200 MILLIGRAM, 2/WEEK
     Route: 065
     Dates: start: 201711, end: 201712
  12. VORICONAZOLE [Suspect]
     Active Substance: VORICONAZOLE
     Dosage: 400 MILLIGRAM, QD
     Route: 065
     Dates: start: 201708, end: 201710

REACTIONS (5)
  - Disease progression [Unknown]
  - Drug resistance [Unknown]
  - Adverse event [Unknown]
  - Hepatic enzyme increased [Unknown]
  - Drug ineffective [Unknown]
